FAERS Safety Report 9391523 (Version 1)
Quarter: 2013Q3

REPORT INFORMATION
  Report Type: Spontaneous
  Country: US (occurrence: US)
  Receive Date: 20130709
  Receipt Date: 20130709
  Transmission Date: 20140515
  Serious: No
  Sender: FDA-Public Use
  Company Number: US-BAYER-2013-083604

PATIENT
  Sex: Female

DRUGS (3)
  1. BETASERON [Suspect]
     Dosage: 0.3 MG, UNK
  2. JUNEL FE [Concomitant]
  3. MULTIVITAMIN [Concomitant]

REACTIONS (1)
  - Injection site bruising [Unknown]
